FAERS Safety Report 10493476 (Version 2)
Quarter: 2015Q1

REPORT INFORMATION
  Report Type: Spontaneous
  Country: US (occurrence: US)
  Receive Date: 20141002
  Receipt Date: 20150214
  Transmission Date: 20150720
  Serious: No
  Sender: FDA-Public Use
  Company Number: US-GLAXOSMITHKLINE-A1084689A

PATIENT

DRUGS (10)
  1. ADVAIR DISKUS [Suspect]
     Active Substance: FLUTICASONE PROPIONATE\SALMETEROL XINAFOATE
     Indication: CHRONIC OBSTRUCTIVE PULMONARY DISEASE
     Dosage: 500/50 MCG
     Route: 055
  2. FUROSEMIDE. [Concomitant]
     Active Substance: FUROSEMIDE
  3. METHOTREXATE [Concomitant]
     Active Substance: METHOTREXATE
  4. AVAPRO [Concomitant]
     Active Substance: IRBESARTAN
  5. NEBULIZER [Concomitant]
     Active Substance: UNSPECIFIED INGREDIENT
  6. XANAX [Concomitant]
     Active Substance: ALPRAZOLAM
  7. ALBUTEROL INHALER [Concomitant]
     Active Substance: ALBUTEROL
  8. ADVAIR DISKUS [Suspect]
     Active Substance: FLUTICASONE PROPIONATE\SALMETEROL XINAFOATE
     Indication: BRONCHITIS CHRONIC
  9. SPIRONOLACTONE. [Concomitant]
     Active Substance: SPIRONOLACTONE
  10. METFORMIN [Concomitant]
     Active Substance: METFORMIN HYDROCHLORIDE

REACTIONS (3)
  - Wheezing [Not Recovered/Not Resolved]
  - Product quality issue [Unknown]
  - Therapeutic response decreased [Unknown]

NARRATIVE: CASE EVENT DATE: 20140810
